FAERS Safety Report 24117056 (Version 1)
Quarter: 2024Q3

REPORT INFORMATION
  Report Type: Spontaneous
  Country: US (occurrence: US)
  Receive Date: 20240722
  Receipt Date: 20240722
  Transmission Date: 20241017
  Serious: Yes (Other)
  Sender: CSL BEHRING
  Company Number: US-BEH-2024175628

PATIENT
  Age: 57 Year
  Sex: Female

DRUGS (1)
  1. HAEGARDA [Suspect]
     Active Substance: HUMAN C1-ESTERASE INHIBITOR
     Indication: Hereditary angioedema
     Dosage: 8000 IU, EVERY 3 DAYS
     Route: 058
     Dates: start: 201808

REACTIONS (2)
  - Hereditary angioedema [Unknown]
  - Weight increased [Unknown]

NARRATIVE: CASE EVENT DATE: 20240701
